FAERS Safety Report 6512454-5 (Version None)
Quarter: 2009Q4

REPORT INFORMATION
  Report Type: 
  Country: None (occurrence: None)
  Receive Date: 20091222
  Receipt Date: 20091217
  Transmission Date: 20100525
  Serious: Yes (Hospitalization)
  Sender: FDA-Public Use
  Company Number: TR-ABBOTT-09P-161-0614632-00

PATIENT
  Age: 31 Year
  Sex: Female

DRUGS (4)
  1. LOPINAVIR AND RITONAVIR [Suspect]
     Indication: ANTIRETROVIRAL THERAPY
     Dosage: 2 X 1
     Route: 048
  2. ERGOTAMINE TARTRATE [Suspect]
     Indication: MIGRAINE
  3. ZIDOVUDINE [Concomitant]
     Indication: ANTIRETROVIRAL THERAPY
     Route: 048
  4. LAMIVUDINE [Concomitant]
     Indication: ANTIRETROVIRAL THERAPY
     Route: 048

REACTIONS (2)
  - DRUG INTERACTION [None]
  - ERGOT POISONING [None]
